FAERS Safety Report 9196362 (Version 1)
Quarter: 2013Q1

REPORT INFORMATION
  Report Type: Spontaneous
  Country: BR (occurrence: BR)
  Receive Date: 20130328
  Receipt Date: 20130328
  Transmission Date: 20140127
  Serious: Yes (Hospitalization)
  Sender: FDA-Public Use
  Company Number: BR-PFIZER INC-2013095759

PATIENT
  Age: 79 Year
  Sex: Male
  Weight: 65 kg

DRUGS (12)
  1. LIPITOR [Suspect]
     Indication: BLOOD CHOLESTEROL
     Dosage: 1 DF, 2X/DAY
     Route: 048
     Dates: start: 2008
  2. AMIODARONE [Concomitant]
     Indication: ARRHYTHMIA
     Dosage: 200 MG, 1X/DAY
  3. FUROSEMIDE [Concomitant]
     Indication: BLOOD PRESSURE
     Dosage: 40 MG, 1X/DAY
  4. MONOCORDIL [Concomitant]
     Indication: VASODILATATION
     Dosage: 20 MG, 2X/DAY
  5. MUVINLAX [Concomitant]
     Indication: LAXATIVE SUPPORTIVE CARE
     Dosage: UNK
     Dates: start: 201303
  6. NOVOLIN [Concomitant]
     Indication: DIABETES MELLITUS
     Dosage: 30 IU, 1X/DAY IN THE MORNING
     Dates: start: 1983
  7. BROMAZEPAM [Concomitant]
     Indication: INSOMNIA
     Dosage: 1 DF, 1X/DAY
  8. BROMAZEPAM [Concomitant]
     Indication: RELAXATION THERAPY
  9. CARDILOL [Concomitant]
     Indication: BLOOD PRESSURE
     Dosage: 1 DF, 2X/DAY
     Dates: start: 2011
  10. NEXIUM [Concomitant]
     Indication: GASTRIC DISORDER
     Dosage: 40 MG, 1X/DAY
     Dates: start: 2013
  11. PLAVIX [Concomitant]
     Indication: THROMBOSIS
     Dosage: 75 MG, 1X/DAY
     Dates: start: 2010
  12. VASTAREL [Concomitant]
     Indication: CHEST PAIN
     Dosage: 35 MG, 2X/DAY

REACTIONS (1)
  - Infarction [Unknown]
